FAERS Safety Report 7273228-3 (Version None)
Quarter: 2011Q1

REPORT INFORMATION
  Report Type: 
  Country: None (occurrence: None)
  Receive Date: 20110203
  Receipt Date: 20110125
  Transmission Date: 20110831
  Serious: Yes (Other)
  Sender: FDA-Public Use
  Company Number: US-ELI_LILLY_AND_COMPANY-US201101006459

PATIENT
  Age: 48 Year
  Sex: Male

DRUGS (1)
  1. PROZAC [Suspect]
     Indication: DEPRESSION

REACTIONS (2)
  - AGGRESSION [None]
  - ANGER [None]
